FAERS Safety Report 13745342 (Version 1)
Quarter: 2017Q3

REPORT INFORMATION
  Report Type: Spontaneous
  Country: US (occurrence: US)
  Receive Date: 20170712
  Receipt Date: 20170712
  Transmission Date: 20171127
  Serious: No
  Sender: FDA-Public Use
  Company Number: US-BRISTOL-MYERS SQUIBB COMPANY-BMS-2017-061147

PATIENT
  Sex: Female

DRUGS (1)
  1. ELIQUIS [Suspect]
     Active Substance: APIXABAN
     Indication: PRODUCT USED FOR UNKNOWN INDICATION
     Dosage: UNK UNK, BID
     Route: 065
     Dates: start: 20170510

REACTIONS (6)
  - Tendon pain [Unknown]
  - Peripheral coldness [Recovered/Resolved]
  - Myalgia [Unknown]
  - Chills [Unknown]
  - Feeling cold [Recovered/Resolved]
  - Peripheral swelling [Unknown]
